FAERS Safety Report 8019864-8 (Version None)
Quarter: 2012Q1

REPORT INFORMATION
  Report Type: 
  Country: None (occurrence: None)
  Receive Date: 20120103
  Receipt Date: 20111222
  Transmission Date: 20120608
  Serious: Yes (Death, Hospitalization)
  Sender: FDA-Public Use
  Company Number: JP-GENZYME-THYM-1001144

PATIENT
  Sex: Female
  Weight: 50 kg

DRUGS (10)
  1. PREDNISOLONE [Concomitant]
     Dosage: 25 MG, QD
     Route: 048
     Dates: start: 20090609
  2. HUMAN RED BLOOD CELLS [Concomitant]
     Indication: APLASTIC ANAEMIA
     Dosage: UNK
     Route: 065
     Dates: start: 20080906, end: 20091027
  3. FILGRASTIM [Concomitant]
     Indication: APLASTIC ANAEMIA
     Dosage: 150 MCG, QD
     Route: 042
     Dates: start: 20090528, end: 20090612
  4. PLATELETS [Concomitant]
     Indication: APLASTIC ANAEMIA
     Dosage: UNK
     Route: 065
     Dates: start: 20080822, end: 20091027
  5. PREDNISOLONE [Concomitant]
     Dosage: 10 MG, QD
     Route: 048
     Dates: start: 20090619
  6. METHYLPREDNISOLONE SODIUM SUCCINATE [Concomitant]
     Indication: PRODUCT USED FOR UNKNOWN INDICATION
     Dosage: 100 MG, QD
     Route: 042
     Dates: start: 20090528, end: 20090601
  7. THYMOGLOBULIN [Suspect]
     Dosage: 187 MG, QD
     Route: 042
     Dates: start: 20090527, end: 20090531
  8. CYCLOSPORINE [Concomitant]
     Indication: PRODUCT USED FOR UNKNOWN INDICATION
     Dosage: 250 MG, UNK
     Route: 048
     Dates: start: 20090528
  9. PREDNISOLONE [Concomitant]
     Indication: APLASTIC ANAEMIA
     Dosage: 50 MG, QD
     Route: 048
     Dates: start: 20090602
  10. PREDNISOLONE [Concomitant]
     Dosage: 5 MG, QD
     Route: 048
     Dates: start: 20090626

REACTIONS (3)
  - ACUTE MYELOID LEUKAEMIA [None]
  - BRONCHOPULMONARY ASPERGILLOSIS [None]
  - HEPATIC FUNCTION ABNORMAL [None]
